FAERS Safety Report 10039425 (Version 1)
Quarter: 2014Q1

REPORT INFORMATION
  Report Type: Report from Study
  Country: AU (occurrence: AU)
  Receive Date: 20140326
  Receipt Date: 20140326
  Transmission Date: 20141002
  Serious: Yes (Hospitalization)
  Sender: FDA-Public Use
  Company Number: PHHY2014AU033037

PATIENT
  Sex: Male

DRUGS (35)
  1. CLOZARIL [Suspect]
     Dosage: UNK UKN, UNK
     Dates: start: 19930709, end: 2002
  2. CLOZAPINE [Suspect]
     Dosage: UNK UKN, UNK
     Dates: start: 20010101, end: 20070221
  3. QUETIAPINE [Suspect]
     Dosage: 1000 MG, QD (400 MG MANE AND 600 MG NOCTE)
     Dates: start: 20070322
  4. QUETIAPINE [Suspect]
     Dosage: 1200 MG, UNK
     Dates: start: 20070324
  5. QUETIAPINE [Suspect]
     Dosage: 1200 MG, UNK
     Dates: start: 20070430
  6. QUETIAPINE [Suspect]
     Dosage: 1200 MG, UNK
     Dates: start: 20070507
  7. QUETIAPINE [Suspect]
     Dosage: 1200 MG, UNK
     Dates: start: 20070510
  8. QUETIAPINE [Suspect]
     Dosage: 1000 MG, UNK
     Dates: start: 20070514
  9. QUETIAPINE [Suspect]
     Dosage: 900 MG, UNK
     Dates: start: 20070516
  10. QUETIAPINE [Suspect]
     Dosage: 700 MG, UNK
     Dates: start: 20070518
  11. QUETIAPINE [Suspect]
     Dosage: 500 MG, UNK
     Dates: start: 20070520
  12. QUETIAPINE [Suspect]
     Dosage: 600 MG, UNK
     Dates: start: 20070522
  13. QUETIAPINE [Suspect]
     Dosage: 600 MG, UNK
     Dates: start: 20070724
  14. LITHIUM [Suspect]
     Dosage: 450 MG, UNK
     Dates: start: 20070329, end: 20070405
  15. LITHIUM [Suspect]
     Dosage: 450 MG, UNK
     Dates: start: 20070621
  16. LITHIUM [Suspect]
     Dosage: 900 MG, UNK
     Dates: start: 20070628
  17. LITHIUM [Suspect]
     Dosage: 1350 MG, UNK
     Dates: start: 20070709
  18. CLOPINE [Suspect]
     Dosage: UNK UKN, UNK
     Dates: start: 20020327
  19. PAROXETINE [Concomitant]
     Dosage: 30 MG, UNK
     Dates: start: 20070322
  20. PAROXETINE [Concomitant]
     Dosage: 30 MG, UNK
     Dates: start: 20070430
  21. PAROXETINE [Concomitant]
     Dosage: 30 MG, UNK
     Dates: start: 20070507
  22. RISPERIDONE [Concomitant]
     Dosage: 2 MG, UNK
     Dates: start: 20070417
  23. RISPERIDONE [Concomitant]
     Dosage: 3 MG, UNK
     Dates: start: 20070430
  24. RISPERIDONE [Concomitant]
     Dosage: 3 MG, UNK
     Dates: start: 20070507
  25. RISPERIDONE [Concomitant]
     Dosage: 4 MG, UNK
     Dates: start: 20070510
  26. RISPERIDONE [Concomitant]
     Dosage: 6 MG, UNK
     Dates: start: 20070516
  27. RISPERIDONE [Concomitant]
     Dosage: 6 MG, UNK
     Dates: start: 20070724
  28. DIAZEPAM [Concomitant]
     Dosage: 10 MG, UNK
     Dates: start: 20070430
  29. DIAZEPAM [Concomitant]
     Dosage: 10 MG, UNK
     Dates: start: 20070507
  30. DIAZEPAM [Concomitant]
     Dosage: 10 MG, UNK
     Dates: start: 20070510, end: 20070522
  31. LORAZEPAM [Concomitant]
     Dosage: MG (3 TO 6)
     Dates: start: 20070322
  32. LORAZEPAM [Concomitant]
     Dosage: MG (8 TO 9)
     Dates: start: 20070324
  33. LORAZEPAM [Concomitant]
     Dosage: MG (3 TO 6)
     Dates: start: 20070326
  34. LORAZEPAM [Concomitant]
     Dosage: MG (3 TO 5)
     Dates: start: 20070329
  35. LORAZEPAM [Concomitant]
     Dosage: MG (3 TO 5)
     Dates: start: 20070403, end: 20070430

REACTIONS (7)
  - Schizoaffective disorder [Unknown]
  - Schizoaffective disorder depressive type [Unknown]
  - Mental impairment [Unknown]
  - Agranulocytosis [Unknown]
  - Neutropenia [Unknown]
  - White blood cell count decreased [Recovered/Resolved]
  - Platelet count decreased [Recovered/Resolved]
